FAERS Safety Report 23872740 (Version 3)
Quarter: 2024Q3

REPORT INFORMATION
  Report Type: Spontaneous
  Country: NL (occurrence: NL)
  Receive Date: 20240520
  Receipt Date: 20240711
  Transmission Date: 20241016
  Serious: Yes (Life-Threatening, Hospitalization, Other)
  Sender: ACCORD
  Company Number: NL-Accord-425028

PATIENT
  Age: 65 Year
  Sex: Female

DRUGS (3)
  1. CAPECITABINE [Suspect]
     Active Substance: CAPECITABINE
     Indication: Hormone receptor positive HER2 negative breast cancer
     Dosage: 1,000 MG/M2 TWICE DAILY FOR 2 WEEKS FOLLOWED BY A 7-DAY REST PERIOD
  2. ACETAZOLAMIDE [Concomitant]
     Active Substance: ACETAZOLAMIDE
     Indication: Intracranial pressure increased
     Dosage: TWICE DAILY
  3. CAPECITABINE [Suspect]
     Active Substance: CAPECITABINE
     Indication: Metastases to meninges
     Dosage: TWICE DAILY FOR 2 WEEKS FOLLOWED BY A 7-DAY REST PERIOD

REACTIONS (7)
  - Thrombocytopenia [Unknown]
  - Neutropenia [Unknown]
  - Hyponatraemia [Unknown]
  - Stomatitis [Unknown]
  - Diarrhoea [Unknown]
  - Pyrexia [Unknown]
  - Cough [Unknown]
